FAERS Safety Report 8496410-6 (Version None)
Quarter: 2012Q3

REPORT INFORMATION
  Report Type: 
  Country: None (occurrence: None)
  Receive Date: 20120709
  Receipt Date: 20120625
  Transmission Date: 20120928
  Serious: Yes (Other)
  Sender: FDA-Public Use
  Company Number: VE-MYLANLABS-2012S1013189

PATIENT
  Age: 24 Year
  Sex: Male

DRUGS (3)
  1. LEVOMEPROMAZINE [Concomitant]
     Indication: MENTAL DISORDER
     Route: 048
  2. HALOPERIDOL [Suspect]
     Indication: MENTAL DISORDER
     Route: 048
  3. CARBAMAZEPINE [Concomitant]
     Indication: MENTAL DISORDER
     Route: 048

REACTIONS (3)
  - PITUITARY TUMOUR BENIGN [None]
  - BREAST ENLARGEMENT [None]
  - HYPERPROLACTINAEMIA [None]
